FAERS Safety Report 11985092 (Version 1)
Quarter: 2016Q1

REPORT INFORMATION
  Report Type: Spontaneous
  Country: US (occurrence: US)
  Receive Date: 20160201
  Receipt Date: 20160201
  Transmission Date: 20160526
  Serious: Yes (Life-Threatening, Hospitalization)
  Sender: FDA-Public Use
  Company Number: US-MYLANLABS-2016M1003493

PATIENT

DRUGS (3)
  1. MESALAZINE [Suspect]
     Active Substance: MESALAMINE
     Dosage: 4GMDAILY
     Route: 054
  2. MESALAZINE [Suspect]
     Active Substance: MESALAMINE
     Indication: COLITIS ULCERATIVE
     Dosage: 3.6GM DAILY
     Route: 048
  3. PREDNISONE. [Concomitant]
     Active Substance: PREDNISONE
     Dosage: TAPERING DOSES OF PREDNISONE
     Route: 065

REACTIONS (2)
  - Myocarditis [Recovering/Resolving]
  - Cardiogenic shock [Recovering/Resolving]
